FAERS Safety Report 5868344-4 (Version None)
Quarter: 2008Q3

REPORT INFORMATION
  Report Type: 
  Country: None (occurrence: None)
  Receive Date: 20080903
  Receipt Date: 20080825
  Transmission Date: 20090109
  Serious: Yes (Hospitalization)
  Sender: FDA-Public Use
  Company Number: US-JNJFOC-20061004891

PATIENT
  Sex: Female
  Weight: 75.75 kg

DRUGS (3)
  1. ORTHO EVRA [Suspect]
     Indication: DRUG USE FOR UNKNOWN INDICATION
  2. CIPRO [Concomitant]
  3. OXYCODONE HCL [Concomitant]

REACTIONS (4)
  - ANAEMIA [None]
  - LIVER FUNCTION TEST ABNORMAL [None]
  - PNEUMONIA [None]
  - PULMONARY EMBOLISM [None]
